FAERS Safety Report 24798357 (Version 2)
Quarter: 2025Q1

REPORT INFORMATION
  Report Type: Spontaneous
  Country: ES (occurrence: ES)
  Receive Date: 20250102
  Receipt Date: 20250129
  Transmission Date: 20250408
  Serious: Yes (Hospitalization, Other)
  Sender: TAKEDA
  Company Number: ES-TAKEDA-2024TUS129302

PATIENT
  Age: 43 Year
  Sex: Female

DRUGS (9)
  1. HUMAN IMMUNOGLOBULIN G [Suspect]
     Active Substance: HUMAN IMMUNOGLOBULIN G
     Indication: Polyomavirus-associated nephropathy
  2. CYCLOSPORINE [Concomitant]
     Active Substance: CYCLOSPORINE
  3. ELTROMBOPAG [Concomitant]
     Active Substance: ELTROMBOPAG
  4. FLUDARABINE [Concomitant]
     Active Substance: FLUDARABINE PHOSPHATE
  5. CYCLOPHOSPHAMIDE [Concomitant]
     Active Substance: CYCLOPHOSPHAMIDE
  6. TACROLIMUS [Concomitant]
     Active Substance: TACROLIMUS
  7. RITUXIMAB [Concomitant]
     Active Substance: RITUXIMAB
  8. DARATUMUMAB [Concomitant]
     Active Substance: DARATUMUMAB
  9. CIDOFOVIR [Concomitant]
     Active Substance: CIDOFOVIR

REACTIONS (2)
  - Anaphylactic reaction [Recovering/Resolving]
  - Product use in unapproved indication [Unknown]
